FAERS Safety Report 8146262-9 (Version None)
Quarter: 2012Q1

REPORT INFORMATION
  Report Type: 
  Country: None (occurrence: None)
  Receive Date: 20120217
  Receipt Date: 20110819
  Transmission Date: 20120608
  Serious: No
  Sender: FDA-Public Use
  Company Number: US-ABBOTT-11P-163-0847916-00

PATIENT
  Sex: Male
  Weight: 90.8 kg

DRUGS (7)
  1. MULTI-VITAMINS [Concomitant]
     Indication: PRODUCT USED FOR UNKNOWN INDICATION
  2. ST. JOHN'S WORT [Concomitant]
     Indication: PRODUCT USED FOR UNKNOWN INDICATION
  3. ASPIRIN [Concomitant]
     Indication: PRODUCT USED FOR UNKNOWN INDICATION
  4. LISINOPRIL [Concomitant]
     Indication: PRODUCT USED FOR UNKNOWN INDICATION
  5. CALCIUM [Concomitant]
     Indication: PRODUCT USED FOR UNKNOWN INDICATION
  6. SIMCOR [Suspect]
     Dosage: 750/UNKNOWN SIMVASTATIN DOSE
  7. SIMCOR [Suspect]
     Indication: LOW DENSITY LIPOPROTEIN INCREASED
     Dosage: 500/UNKNOWN SIMVASTATIN DOSE, AT BEDTIME
     Dates: start: 20090801

REACTIONS (5)
  - SKIN IRRITATION [None]
  - GLUCOSE TOLERANCE IMPAIRED [None]
  - ERYTHEMA [None]
  - PRURITUS [None]
  - FLUSHING [None]
